FAERS Safety Report 18812595 (Version 1)
Quarter: 2021Q1

REPORT INFORMATION
  Report Type: Spontaneous
  Country: CA (occurrence: CA)
  Receive Date: 20210130
  Receipt Date: 20210130
  Transmission Date: 20210419
  Serious: Yes (Death)
  Sender: FDA-Public Use
  Company Number: NVSC2021CA019874

PATIENT
  Age: 74 Year
  Sex: Male

DRUGS (12)
  1. EXJADE [Suspect]
     Active Substance: DEFERASIROX
     Indication: IRON OVERLOAD
     Dosage: 1500 MG, QD (1 EVERY 1 DAYS)
     Route: 048
  2. CLOPIDOGREL BISULFATE. [Concomitant]
     Active Substance: CLOPIDOGREL BISULFATE
     Indication: PRODUCT USED FOR UNKNOWN INDICATION
     Dosage: UNK
     Route: 065
  3. EXJADE [Suspect]
     Active Substance: DEFERASIROX
     Dosage: 500 MG, Q8H (1 EVERY 8 HOURS)
     Route: 048
  4. ZOPICLONE [Suspect]
     Active Substance: ZOPICLONE
     Indication: HYPNOTHERAPY
     Dosage: UNK
     Route: 048
  5. FLOMAX [Suspect]
     Active Substance: TAMSULOSIN HYDROCHLORIDE
     Indication: PROSTATIC DISORDER
     Dosage: UNK (CAPSULE SUSTAINED RELEASE)
     Route: 048
  6. PANTOPRAZOLE [Suspect]
     Active Substance: PANTOPRAZOLE
     Indication: ANTACID THERAPY
     Dosage: UNK
     Route: 048
  7. SIMVASTATIN. [Suspect]
     Active Substance: SIMVASTATIN
     Indication: BLOOD CHOLESTEROL ABNORMAL
     Dosage: UNK
     Route: 048
  8. EXJADE [Suspect]
     Active Substance: DEFERASIROX
     Dosage: 500 MG, QD (1 EVERY 1 DAYS)
     Route: 048
  9. EXJADE [Suspect]
     Active Substance: DEFERASIROX
     Dosage: 500 MG, QD (1 EVERY 1 DAYS)
     Route: 048
  10. METFORMIN HYDROCHLORIDE. [Suspect]
     Active Substance: METFORMIN HYDROCHLORIDE
     Indication: DIABETES MELLITUS
     Dosage: UNK
     Route: 048
  11. ALLOPURINOL. [Concomitant]
     Active Substance: ALLOPURINOL
     Indication: PRODUCT USED FOR UNKNOWN INDICATION
     Dosage: UNK
     Route: 065
  12. PROZAC [Concomitant]
     Active Substance: FLUOXETINE HYDROCHLORIDE
     Indication: PRODUCT USED FOR UNKNOWN INDICATION
     Dosage: UNK
     Route: 065

REACTIONS (6)
  - Gastrointestinal pain [Fatal]
  - White blood cell count decreased [Fatal]
  - Muscle spasms [Fatal]
  - Malaise [Fatal]
  - Serum ferritin abnormal [Fatal]
  - Tooth infection [Fatal]
